FAERS Safety Report 12124818 (Version 2)
Quarter: 2016Q1

REPORT INFORMATION
  Report Type: Spontaneous
  Country: GB (occurrence: GB)
  Receive Date: 20160229
  Receipt Date: 20160304
  Transmission Date: 20160526
  Serious: Yes (Hospitalization)
  Sender: FDA-Public Use
  Company Number: GB-009507513-1602GBR012433

PATIENT
  Sex: Female

DRUGS (1)
  1. DESLORATADINE. [Suspect]
     Active Substance: DESLORATADINE
     Indication: DRUG HYPERSENSITIVITY
     Dosage: 2 TABLETS AT ONCE
     Route: 048

REACTIONS (3)
  - Blister [Unknown]
  - Dehydration [Unknown]
  - Ketoacidosis [Unknown]
